FAERS Safety Report 4898385-5 (Version None)
Quarter: 2006Q1

REPORT INFORMATION
  Report Type: 
  Country: None (occurrence: None)
  Receive Date: 20060131
  Receipt Date: 20060131
  Transmission Date: 20060701
  Serious: Yes (Hospitalization)
  Sender: FDA-Public Use
  Company Number: None

PATIENT
  Sex: Male

DRUGS (11)
  1. CAMPATH [Suspect]
     Indication: MYCOSIS FUNGOIDES REFRACTORY
     Dosage: 10 MG SQ 3 WEEKS
     Route: 058
     Dates: start: 20050907
  2. CAMPATH [Suspect]
     Indication: MYCOSIS FUNGOIDES REFRACTORY
     Dosage: 10 MG SQ 3 WEEKS
     Route: 058
     Dates: start: 20050919
  3. CAMPATH [Suspect]
     Indication: MYCOSIS FUNGOIDES REFRACTORY
     Dosage: 10 MG SQ 3 WEEKS
     Route: 058
     Dates: start: 20051010
  4. VINCRISTINE [Suspect]
     Dosage: 1.4MG/M2 IVR Q 3 WEEKS MAX 2MG
     Route: 042
     Dates: start: 20051101
  5. VINCRISTINE [Suspect]
     Dosage: 1.4MG/M2 IVR Q 3 WEEKS MAX 2MG
     Route: 042
     Dates: start: 20051122
  6. VINCRISTINE [Suspect]
     Dosage: 1.4MG/M2 IVR Q 3 WEEKS MAX 2MG
     Route: 042
     Dates: start: 20051213
  7. CYCLOPHOSPHAMIDE [Suspect]
     Dosage: 750 MG IV 10 Q 3 WEEKS
     Route: 042
  8. PREDNISONE [Suspect]
     Dosage: 100 MG PO DAYS 1-5
     Route: 048
  9. DOXORUBICIN [Suspect]
     Dosage: 50MG/M2 IVP Q 3 WEEKS
     Route: 033
  10. NEULASTA [Concomitant]
  11. ARANESP [Concomitant]

REACTIONS (15)
  - ABDOMINAL PAIN [None]
  - BLOOD BILIRUBIN INCREASED [None]
  - BLOOD GLUCOSE INCREASED [None]
  - BLOOD PRESSURE DIASTOLIC DECREASED [None]
  - BLOOD SODIUM DECREASED [None]
  - DIARRHOEA [None]
  - FATIGUE [None]
  - HAEMOGLOBIN DECREASED [None]
  - HEART RATE INCREASED [None]
  - ILEUS [None]
  - MUSCLE SPASMS [None]
  - NAUSEA [None]
  - NEUTROPHIL COUNT DECREASED [None]
  - PYREXIA [None]
  - VOMITING [None]
